FAERS Safety Report 6019538-9 (Version None)
Quarter: 2008Q4

REPORT INFORMATION
  Report Type: 
  Country: None (occurrence: None)
  Receive Date: 20081224
  Receipt Date: 20081217
  Transmission Date: 20090506
  Serious: Yes (Other)
  Sender: FDA-Public Use
  Company Number: GB-AMGEN-US320645

PATIENT
  Sex: Female
  Weight: 129 kg

DRUGS (3)
  1. ENBREL [Suspect]
     Indication: PSORIASIS
     Route: 058
     Dates: start: 20071210, end: 20080601
  2. DOXAZOSIN MESYLATE [Concomitant]
     Dosage: 12 MG FREQUENCY UNKNOWN
     Route: 048
  3. CYCLOSPORINE [Concomitant]
     Indication: PSORIASIS
     Route: 048
     Dates: start: 20080901

REACTIONS (1)
  - MUSCULAR WEAKNESS [None]
